FAERS Safety Report 6372375-8 (Version None)
Quarter: 2009Q3

REPORT INFORMATION
  Report Type: 
  Country: None (occurrence: None)
  Receive Date: 20090924
  Receipt Date: 20081002
  Transmission Date: 20100115
  Serious: No
  Sender: FDA-Public Use
  Company Number: US-ASTRAZENECA-2008UW21708

PATIENT
  Age: 55 Year
  Sex: Female

DRUGS (2)
  1. SEROQUEL XR [Suspect]
     Route: 048
  2. SEROQUEL [Concomitant]
     Dosage: IMMEDIATE RELEASE
     Route: 048

REACTIONS (1)
  - CHEST DISCOMFORT [None]
